FAERS Safety Report 4871154-8 (Version None)
Quarter: 2005Q4

REPORT INFORMATION
  Report Type: 
  Country: None (occurrence: None)
  Receive Date: 20051229
  Receipt Date: 20051213
  Transmission Date: 20060501
  Serious: Yes (Hospitalization, Disabling)
  Sender: FDA-Public Use
  Company Number: 2005BI022522

PATIENT
  Age: 58 Year
  Sex: Male
  Weight: 70 kg

DRUGS (4)
  1. ZEVALIN [Suspect]
     Indication: NON-HODGKIN'S LYMPHOMA
     Dosage: 1X; IV
     Route: 042
     Dates: start: 20040115, end: 20040115
  2. ZEVALIN [Suspect]
     Indication: MULTIPLE SCLEROSIS
     Dosage: 0.4 MCI/KG; 1X; IV
     Route: 042
     Dates: start: 20040122, end: 20040122
  3. RITUXIMAB [Concomitant]
  4. RITUXIMAB [Concomitant]

REACTIONS (1)
  - CERVICAL SPINAL STENOSIS [None]
